FAERS Safety Report 17248687 (Version 3)
Quarter: 2020Q1

REPORT INFORMATION
  Report Type: Report from Study
  Country: IE (occurrence: IE)
  Receive Date: 20200108
  Receipt Date: 20200316
  Transmission Date: 20200409
  Serious: Yes (Hospitalization)
  Sender: FDA-Public Use
  Company Number: IE-JNJFOC-20190225378

PATIENT
  Age: 68 Year
  Sex: Female
  Weight: 85 kg

DRUGS (15)
  1. BETAHISTINE DIHYDROCHLORIDE [Concomitant]
     Active Substance: BETAHISTINE
     Route: 050
  2. NEXIUM [Concomitant]
     Active Substance: ESOMEPRAZOLE MAGNESIUM
     Indication: DUODENAL ULCER
     Route: 050
  3. DELTACORTRIL [Concomitant]
     Active Substance: PREDNISOLONE
     Indication: TEMPORAL ARTERITIS
     Route: 048
  4. ASPIRIN. [Concomitant]
     Active Substance: ASPIRIN
     Indication: HYPERTENSION
     Route: 048
  5. CALCIUM CARBONATE. [Concomitant]
     Active Substance: CALCIUM CARBONATE
     Route: 050
  6. CANDESARTAN. [Concomitant]
     Active Substance: CANDESARTAN
     Indication: HYPERTENSION
     Route: 048
  7. STELARA [Suspect]
     Active Substance: USTEKINUMAB
     Indication: TEMPORAL ARTERITIS
     Route: 058
     Dates: start: 201802, end: 2019
  8. STELARA [Suspect]
     Active Substance: USTEKINUMAB
     Route: 058
     Dates: start: 2019
  9. FOLIC ACID. [Concomitant]
     Active Substance: FOLIC ACID
     Route: 050
  10. METHOTREXATE. [Concomitant]
     Active Substance: METHOTREXATE
     Indication: TEMPORAL ARTERITIS
     Route: 048
     Dates: start: 20171016
  11. MONTELUKAST [Concomitant]
     Active Substance: MONTELUKAST SODIUM
     Dosage: 10 MG AT NIGHT.
     Route: 050
  12. AMLODIPINE [Concomitant]
     Active Substance: AMLODIPINE BESYLATE
     Route: 050
  13. BISOPROLOL [Concomitant]
     Active Substance: BISOPROLOL
     Route: 050
  14. FEXOFENADINE [Concomitant]
     Active Substance: FEXOFENADINE HYDROCHLORIDE
     Route: 050
  15. LYRICA [Concomitant]
     Active Substance: PREGABALIN
     Indication: PAIN
     Route: 048

REACTIONS (5)
  - Temporal arteritis [Recovered/Resolved]
  - Off label use [Unknown]
  - Product use in unapproved indication [Unknown]
  - Cystitis [Not Recovered/Not Resolved]
  - Gastrointestinal infection [Not Recovered/Not Resolved]

NARRATIVE: CASE EVENT DATE: 201802
